FAERS Safety Report 17098107 (Version 3)
Quarter: 2019Q4

REPORT INFORMATION
  Report Type: Spontaneous
  Country: US (occurrence: US)
  Receive Date: 20191202
  Receipt Date: 20191210
  Transmission Date: 20200122
  Serious: Yes (Other)
  Sender: FDA-Public Use
  Company Number: US-SHIRE-US201941167

PATIENT
  Age: 70 Year
  Sex: Female

DRUGS (2)
  1. GATTEX [Suspect]
     Active Substance: TEDUGLUTIDE\WATER
     Dosage: 1 MILLIGRAM, 1X/DAY:QD
     Route: 050
     Dates: start: 20190729
  2. GATTEX [Suspect]
     Active Substance: TEDUGLUTIDE\WATER
     Indication: SHORT-BOWEL SYNDROME
     Dosage: 0.9 MILLIGRAM, 1X/DAY:QD
     Route: 058
     Dates: start: 20190718

REACTIONS (8)
  - Stoma site pain [Unknown]
  - Pain in extremity [Unknown]
  - Gastrointestinal pain [Unknown]
  - Musculoskeletal discomfort [Unknown]
  - Pain [Unknown]
  - Renal impairment [Unknown]
  - Diarrhoea [Unknown]
  - Product dose omission [Unknown]

NARRATIVE: CASE EVENT DATE: 20191203
